FAERS Safety Report 10082637 (Version 3)
Quarter: 2014Q2

REPORT INFORMATION
  Report Type: Spontaneous
  Country: US (occurrence: US)
  Receive Date: 20140416
  Receipt Date: 20140512
  Transmission Date: 20141212
  Serious: Yes (Life-Threatening, Hospitalization, Disabling)
  Sender: FDA-Public Use
  Company Number: US-MERCK-1404USA007825

PATIENT
  Age: 68 Year
  Sex: Female
  Weight: 73.16 kg

DRUGS (15)
  1. INVANZ [Suspect]
     Indication: ESCHERICHIA BACTERAEMIA
     Dosage: 0.5 G, DAILY
     Route: 042
     Dates: start: 20140316, end: 20140326
  2. INVANZ [Suspect]
     Dosage: TOTAL DAILY DOSE 1G
     Route: 042
     Dates: start: 20140323, end: 20140330
  3. ELAVIL [Concomitant]
  4. AMLODIPINE [Concomitant]
  5. ALDACTONE (CANRENOATE POTASSIUM) [Concomitant]
  6. BUMEX [Concomitant]
  7. FERROUS SULFATE [Concomitant]
  8. NEURONTIN [Concomitant]
  9. LOPID [Concomitant]
  10. SYNTHROID [Concomitant]
  11. PRINIVIL [Concomitant]
     Route: 048
  12. ZOLOFT [Concomitant]
  13. LABETALOL HYDROCHLORIDE [Concomitant]
  14. POTASSIUM (UNSPECIFIED) [Concomitant]
  15. LEVOFLOXACIN [Concomitant]
     Indication: SEPSIS
     Dosage: DAILY DOSE 250 MG
     Route: 048
     Dates: start: 20140321, end: 20140323

REACTIONS (1)
  - Escherichia bacteraemia [Recovered/Resolved]
